FAERS Safety Report 10923654 (Version 1)
Quarter: 2015Q1

REPORT INFORMATION
  Report Type: Spontaneous
  Country: BE (occurrence: BE)
  Receive Date: 20150318
  Receipt Date: 20150318
  Transmission Date: 20150721
  Serious: Yes (Other)
  Sender: FDA-Public Use
  Company Number: BE-ROCHE-1551211

PATIENT
  Sex: Female

DRUGS (2)
  1. NAPROSYN [Suspect]
     Active Substance: NAPROXEN
     Indication: JOINT SWELLING
     Route: 048
     Dates: end: 1996
  2. NAPROSYN [Suspect]
     Active Substance: NAPROXEN
     Indication: ABDOMINAL PAIN UPPER
     Route: 048
     Dates: start: 1988

REACTIONS (2)
  - Off label use [Unknown]
  - Infertility [Not Recovered/Not Resolved]
